FAERS Safety Report 8912293 (Version 2)
Quarter: 2013Q1

REPORT INFORMATION
  Report Type: Report from Study
  Country: GB (occurrence: AU)
  Receive Date: 20121115
  Receipt Date: 20130311
  Transmission Date: 20140127
  Serious: Yes (Hospitalization)
  Sender: FDA-Public Use
  Company Number: GB-PFIZER INC-2012277057

PATIENT
  Age: 52 Year
  Sex: Female
  Weight: 66.7 kg

DRUGS (21)
  1. CALCIUM FOLINATE [Suspect]
     Indication: COLORECTAL CANCER METASTATIC
     Dosage: 690 MG, 1 IN 14 DAYS
     Route: 042
     Dates: start: 20120717
  2. FLUOROURACIL [Suspect]
     Indication: COLORECTAL CANCER METASTATIC
     Dosage: 4150 MG, 1 IN 14 DAYS
     Route: 041
     Dates: start: 20120717
  3. OXALIPLATIN [Suspect]
     Indication: COLORECTAL CANCER METASTATIC
     Dosage: 150 MG, 1 IN 14 DAYS
     Route: 042
     Dates: start: 20120717
  4. BEVACIZUMAB [Suspect]
     Indication: COLORECTAL CANCER METASTATIC
     Dosage: 330 MG, 1 IN 14 DAYS
     Route: 041
     Dates: start: 20120717
  5. PLACEBO [Suspect]
     Indication: COLORECTAL CANCER METASTATIC
     Dosage: UNK, 1 IN 14 DAYS
     Route: 042
     Dates: start: 20120717
  6. VITAMIN D [Concomitant]
     Indication: PRODUCT USED FOR UNKNOWN INDICATION
     Route: 048
  7. VITAMIN B [Concomitant]
     Indication: PRODUCT USED FOR UNKNOWN INDICATION
     Route: 048
  8. FISH OIL [Concomitant]
     Indication: PRODUCT USED FOR UNKNOWN INDICATION
     Dosage: UNK
     Route: 048
  9. VITAMIN A [Concomitant]
     Indication: PRODUCT USED FOR UNKNOWN INDICATION
     Dosage: 5000 IU, UNK
     Route: 048
  10. GLUCOSAMINE [Concomitant]
     Indication: PRODUCT USED FOR UNKNOWN INDICATION
     Dosage: UNK
     Route: 048
  11. TROPISETRON [Concomitant]
     Indication: PROPHYLAXIS OF NAUSEA AND VOMITING
     Dosage: 5 MG, UNK
     Route: 042
     Dates: start: 20120717
  12. TROPISETRON [Concomitant]
     Dosage: UNK
     Route: 048
     Dates: start: 20120717
  13. DEXAMETHASONE [Concomitant]
     Indication: PROPHYLAXIS OF NAUSEA AND VOMITING
     Dosage: 4 MG, UNK
     Route: 048
     Dates: start: 20120718, end: 20120719
  14. DEXAMETHASONE [Concomitant]
     Dosage: 8 MG, UNK
     Route: 042
     Dates: start: 20120718, end: 20120719
  15. APREPITANT [Concomitant]
     Indication: PROPHYLAXIS OF NAUSEA AND VOMITING
     Dosage: 80 AND 125 MG, UNK
     Route: 048
     Dates: start: 20120731, end: 20120731
  16. OMEPRAZOLE [Concomitant]
     Indication: PRODUCT USED FOR UNKNOWN INDICATION
     Dosage: 20 MG, UNK
     Route: 048
     Dates: start: 20120801, end: 20120802
  17. NYSTATIN [Concomitant]
     Indication: ORAL CANDIDIASIS
     Dosage: 1 ML, UNK
     Route: 048
     Dates: start: 20120807
  18. AMPHOTERICIN B [Concomitant]
     Indication: CANDIDA INFECTION
     Dosage: 1 DF (TABLET), UNK
     Route: 048
     Dates: start: 20120816
  19. AMPHOTERICIN B [Concomitant]
     Indication: CANDIDA INFECTION
  20. SODIUM BICARBONATE/SODIUM CHLORIDE [Concomitant]
     Indication: MUCOSAL INFLAMMATION
     Dosage: 10 MG, UNK/10 MG, UNK
     Route: 048
     Dates: start: 20120822
  21. SODIUM BICARBONATE/SODIUM CHLORIDE [Concomitant]
     Indication: MUCOSAL INFLAMMATION

REACTIONS (2)
  - Chest pain [Recovered/Resolved]
  - Non-cardiac chest pain [Recovering/Resolving]
